FAERS Safety Report 5800738-5 (Version None)
Quarter: 2008Q4

REPORT INFORMATION
  Report Type: 
  Country: None (occurrence: None)
  Receive Date: 20080701
  Receipt Date: 20080618
  Transmission Date: 20090506
  Serious: Yes (Hospitalization)
  Sender: FDA-Public Use
  Company Number: 280001L08JPN

PATIENT
  Age: 37 Year
  Sex: Female
  Weight: 48 kg

DRUGS (4)
  1. UROFOLLITROPIN [Suspect]
     Indication: IN VITRO FERTILISATION
     Dosage: 1425 IU
  2. MELPHALAN [Suspect]
     Indication: IN VITRO FERTILISATION
  3. CHORIONIC GONADOTROPIN [Suspect]
     Indication: IN VITRO FERTILISATION
     Dosage: 5000 IU, ONCE
  4. CETRORELIX ACETATE [Suspect]
     Dosage: 0.25 MG, 4 IN 1

REACTIONS (11)
  - ABDOMINAL PAIN [None]
  - CEREBRAL INFARCTION [None]
  - DYSARTHRIA [None]
  - HYPOAESTHESIA [None]
  - HYPOTONIA [None]
  - NYSTAGMUS [None]
  - ORAL DISORDER [None]
  - PLATELET COUNT DECREASED [None]
  - SWELLING [None]
  - TREMOR [None]
  - VASCULAR STENOSIS [None]
